FAERS Safety Report 4278328-8 (Version None)
Quarter: 2004Q1

REPORT INFORMATION
  Report Type: 
  Country: None (occurrence: None)
  Receive Date: 20040121
  Receipt Date: 20040107
  Transmission Date: 20041129
  Serious: Yes (Hospitalization)
  Sender: FDA-Public Use
  Company Number: 2004S1000018

PATIENT
  Age: 53 Year
  Sex: Female

DRUGS (7)
  1. CUBICIN [Suspect]
     Indication: GLYCOPEPTIDE ANTIBIOTIC RESISTANT ENTEROCOCCAL INFECTION
     Dosage: 350 MG; QD; IV
     Route: 042
     Dates: start: 20031201, end: 20031230
  2. CUBICIN [Suspect]
     Indication: IMPLANT SITE INFECTION
     Dosage: 350 MG; QD; IV
     Route: 042
     Dates: start: 20031201, end: 20031230
  3. CUBICIN [Suspect]
     Indication: PSEUDOMONAS INFECTION
     Dosage: 350 MG; QD; IV
     Route: 042
     Dates: start: 20031201, end: 20031230
  4. CEFEPIME HYDROCHLORIDE [Suspect]
     Indication: GLYCOPEPTIDE ANTIBIOTIC RESISTANT ENTEROCOCCAL INFECTION
     Dosage: 2 GM; Q12H; IV
     Route: 042
     Dates: start: 20031201, end: 20031230
  5. CEFEPIME HYDROCHLORIDE [Suspect]
     Indication: IMPLANT SITE INFECTION
     Dosage: 2 GM; Q12H; IV
     Route: 042
     Dates: start: 20031201, end: 20031230
  6. CEFEPIME HYDROCHLORIDE [Suspect]
     Indication: PSEUDOMONAS INFECTION
     Dosage: 2 GM; Q12H; IV
     Route: 042
     Dates: start: 20031201, end: 20031230
  7. HYDROCHLOROTHIAZIDE [Concomitant]

REACTIONS (5)
  - BLOOD CALCIUM DECREASED [None]
  - BLOOD CREATININE INCREASED [None]
  - BLOOD POTASSIUM DECREASED [None]
  - COMA [None]
  - RHABDOMYOLYSIS [None]
